APPROVED DRUG PRODUCT: CARISOPRODOL COMPOUND
Active Ingredient: ASPIRIN; CARISOPRODOL
Strength: 325MG;200MG
Dosage Form/Route: TABLET;ORAL
Application: A088809 | Product #001
Applicant: WATSON LABORATORIES INC
Approved: Oct 3, 1985 | RLD: No | RS: No | Type: DISCN